FAERS Safety Report 4616309-2 (Version None)
Quarter: 2005Q1

REPORT INFORMATION
  Report Type: 
  Country: None (occurrence: None)
  Receive Date: 20050321
  Receipt Date: 20050310
  Transmission Date: 20050727
  Serious: Yes (Other)
  Sender: FDA-Public Use
  Company Number: SUS1-2005-00092

PATIENT
  Age: 49 Year
  Sex: Female

DRUGS (6)
  1. ADDERALL 10 [Suspect]
     Indication: ATTENTION DEFICIT/HYPERACTIVITY DISORDER
     Dosage: 10 MG, 1X/DAY: QD
     Dates: start: 20050111, end: 20050115
  2. STRATTERA [Concomitant]
  3. ELAVIL [Concomitant]
  4. ARICEPT [Concomitant]
  5. WELLBUTRIN [Concomitant]
  6. PROZAC [Concomitant]

REACTIONS (2)
  - CONDITION AGGRAVATED [None]
  - CROHN'S DISEASE [None]
